FAERS Safety Report 7564531-8 (Version None)
Quarter: 2011Q2

REPORT INFORMATION
  Report Type: 
  Country: None (occurrence: None)
  Receive Date: 20110622
  Receipt Date: 20100511
  Transmission Date: 20111010
  Serious: Yes (Death)
  Sender: FDA-Public Use
  Company Number: US-MYLANLABS-2010S1008356

PATIENT
  Age: 79 Year
  Sex: Male

DRUGS (15)
  1. CLOZAPINE [Suspect]
     Route: 048
  2. CALCIUM CARBONATE [Concomitant]
  3. CEFTRIAXONE [Concomitant]
  4. LISINOPRIL [Concomitant]
  5. PLAVIX [Concomitant]
  6. ZETIA [Concomitant]
  7. FLOMAX [Concomitant]
  8. DEPAKOTE [Concomitant]
  9. MOBIC [Concomitant]
  10. ATENOLOL [Concomitant]
  11. KEPPRA [Concomitant]
  12. MORPHINE [Concomitant]
  13. VITAMIN D [Concomitant]
  14. LEXAPRO [Concomitant]
  15. ASCORBIC ACID [Concomitant]

REACTIONS (1)
  - DEATH [None]
